FAERS Safety Report 19020552 (Version 1)
Quarter: 2021Q1

REPORT INFORMATION
  Report Type: Spontaneous
  Country: GB (occurrence: GB)
  Receive Date: 20210317
  Receipt Date: 20210317
  Transmission Date: 20210420
  Serious: Yes (Other)
  Sender: FDA-Public Use
  Company Number: GB-AMGEN-GBRSP2021038925

PATIENT

DRUGS (1)
  1. PROLIA [Suspect]
     Active Substance: DENOSUMAB
     Indication: BONE DENSITY DECREASED
     Dosage: UNK
     Route: 065

REACTIONS (7)
  - Malaise [Unknown]
  - Sciatica [Unknown]
  - Skin disorder [Unknown]
  - Nasal congestion [Unknown]
  - Uveitis [Unknown]
  - Raynaud^s phenomenon [Unknown]
  - Spinal fracture [Unknown]
